FAERS Safety Report 19425271 (Version 1)
Quarter: 2021Q2

REPORT INFORMATION
  Report Type: Spontaneous
  Country: US (occurrence: US)
  Receive Date: 20210616
  Receipt Date: 20210616
  Transmission Date: 20210717
  Serious: Yes (Other)
  Sender: FDA-Public Use
  Company Number: US-PURDUE-USA-2021-0270660

PATIENT
  Sex: Female

DRUGS (1)
  1. BUPRENORPHINE TRANSDERMAL PATCH (SIMILAR TO NDA 21?306) [Suspect]
     Active Substance: BUPRENORPHINE
     Indication: FOETAL EXPOSURE DURING PREGNANCY
     Dosage: UNKNOWN
     Route: 064

REACTIONS (7)
  - Learning disability [Unknown]
  - Drug dependence [Unknown]
  - Emotional distress [Unknown]
  - Foetal exposure during pregnancy [Unknown]
  - Pain [Unknown]
  - Drug withdrawal syndrome neonatal [Unknown]
  - Developmental delay [Unknown]
